FAERS Safety Report 6809406-4 (Version None)
Quarter: 2010Q2

REPORT INFORMATION
  Report Type: 
  Country: None (occurrence: None)
  Receive Date: 20100630
  Receipt Date: 20100330
  Transmission Date: 20101027
  Serious: Yes (Other)
  Sender: FDA-Public Use
  Company Number: US-ASTRAZENECA-2006UW09088

PATIENT
  Age: 19649 Day
  Sex: Female
  Weight: 78.9 kg

DRUGS (18)
  1. SEROQUEL [Suspect]
     Indication: BIPOLAR DISORDER
     Dosage: 25 MG TO 100 MG
     Route: 048
     Dates: start: 20040101, end: 20050101
  2. SEROQUEL [Suspect]
     Indication: SLEEP DISORDER
     Dosage: 25 MG TO 100 MG
     Route: 048
     Dates: start: 20040101, end: 20050101
  3. SEROQUEL [Suspect]
     Dosage: 25-100 MG
     Route: 048
     Dates: start: 20040525
  4. SEROQUEL [Suspect]
     Dosage: 25-100 MG
     Route: 048
     Dates: start: 20040525
  5. RISPERDAL [Suspect]
     Indication: BIPOLAR DISORDER
     Dates: start: 20020101, end: 20050101
  6. EFFEXOR XR [Concomitant]
     Indication: DEPRESSION
     Dosage: 37.5 TO 75 MG
     Dates: start: 20041221
  7. WELLBUTRIN XL [Concomitant]
     Dosage: 150 TO 300 MG
     Dates: start: 20040412
  8. DEPAKOTE ER [Concomitant]
     Route: 048
     Dates: start: 20040412
  9. DETROL LA [Concomitant]
     Dates: start: 20041104
  10. ACTONEL [Concomitant]
     Dosage: 35 Q EVERY DAY
     Dates: start: 20031201
  11. GLUCOPHAGE XR [Concomitant]
     Dosage: 500 BID
     Dates: start: 20031201
  12. AMARYL [Concomitant]
     Dates: start: 20030924
  13. LITHOBID [Concomitant]
     Indication: BIPOLAR DISORDER
     Route: 048
     Dates: start: 20040412
  14. LITHOBID [Concomitant]
     Indication: MANIA
     Route: 048
     Dates: start: 20040412
  15. LITHOBID [Concomitant]
     Indication: ANXIETY
     Route: 048
     Dates: start: 20040412
  16. LITHOBID [Concomitant]
     Indication: IRRITABILITY
     Route: 048
     Dates: start: 20040412
  17. LITHOBID [Concomitant]
     Indication: RESTLESSNESS
     Route: 048
     Dates: start: 20040412
  18. LITHOBID [Concomitant]
     Indication: POOR QUALITY SLEEP
     Route: 048
     Dates: start: 20040412

REACTIONS (4)
  - DIABETES MELLITUS [None]
  - DIABETIC NEUROPATHY [None]
  - INSULIN RESISTANCE [None]
  - SCIATIC NERVE NEUROPATHY [None]
